FAERS Safety Report 8722403 (Version 3)
Quarter: 2013Q4

REPORT INFORMATION
  Report Type: Report from Study
  Country: DE (occurrence: DE)
  Receive Date: 20120814
  Receipt Date: 20131031
  Transmission Date: 20140711
  Serious: Yes (Hospitalization, Other)
  Sender: FDA-Public Use
  Company Number: DE-009507513-2012SP021378

PATIENT
  Age: 43 Year
  Sex: Female

DRUGS (8)
  1. SYCREST [Suspect]
     Dosage: 0-15 MG, DAILY
     Route: 048
     Dates: start: 20120110, end: 20120131
  2. SYCREST [Interacting]
     Dosage: 20 MG, DAILY
     Route: 048
     Dates: start: 20120201, end: 20120325
  3. SYCREST [Interacting]
     Dosage: 15 MG, DAILY
     Route: 048
     Dates: start: 20120326, end: 20120402
  4. SYCREST [Interacting]
     Dosage: 10 MG, DAILY
     Route: 048
     Dates: start: 20120403, end: 20120404
  5. SYCREST [Interacting]
     Dosage: 5 MG, DAILY
     Route: 048
     Dates: start: 20120405, end: 20120405
  6. PAROXETINE [Interacting]
     Dosage: 10 MG, QD
     Dates: start: 20120110, end: 20120315
  7. PAROXETINE [Interacting]
     Dosage: 10 MG, QD
     Dates: start: 20120410, end: 20120418
  8. ACETYLCYSTEINE [Concomitant]
     Dosage: 600 MG, QD
     Dates: start: 20110328, end: 20120405

REACTIONS (7)
  - Tardive dyskinesia [Recovering/Resolving]
  - Drug interaction [Unknown]
  - Tension [Recovering/Resolving]
  - Affect lability [Recovering/Resolving]
  - Restlessness [Recovering/Resolving]
  - Dizziness [Recovering/Resolving]
  - Incorrect route of drug administration [Unknown]
